FAERS Safety Report 15429966 (Version 1)
Quarter: 2018Q3

REPORT INFORMATION
  Report Type: Spontaneous
  Country: US (occurrence: US)
  Receive Date: 20180926
  Receipt Date: 20180926
  Transmission Date: 20181010
  Serious: Yes (Other)
  Sender: FDA-Public Use
  Company Number: US-PFIZER INC-2018382722

PATIENT
  Sex: Female

DRUGS (2)
  1. LYRICA [Suspect]
     Active Substance: PREGABALIN
     Indication: NEUROPATHY PERIPHERAL
  2. LYRICA [Suspect]
     Active Substance: PREGABALIN
     Indication: ARTHROPATHY
     Dosage: 75 MG, 2X/DAY

REACTIONS (5)
  - Red blood cell count decreased [Unknown]
  - Colon cancer [Unknown]
  - Neuropathy peripheral [Unknown]
  - Condition aggravated [Unknown]
  - White blood cell count increased [Unknown]

NARRATIVE: CASE EVENT DATE: 2015
